FAERS Safety Report 17771506 (Version 2)
Quarter: 2022Q2

REPORT INFORMATION
  Report Type: Report from Study
  Country: US (occurrence: US)
  Receive Date: 20200512
  Receipt Date: 20220429
  Transmission Date: 20220720
  Serious: Yes (Hospitalization, Other)
  Sender: FDA-Public Use
  Company Number: US-AMGEN-USACT2020074748

PATIENT
  Age: 56 Year
  Sex: Female
  Weight: 73.2 kg

DRUGS (8)
  1. BLINATUMOMAB [Suspect]
     Active Substance: BLINATUMOMAB
     Indication: B precursor type acute leukaemia
     Dosage: UNK
     Route: 065
     Dates: start: 20190416, end: 20190513
  2. METHOTREXATE [Suspect]
     Active Substance: METHOTREXATE
     Indication: B precursor type acute leukaemia
     Dosage: 12.5 MILLIGRAM, Q3MO (TOTAL DOSE: 47.5 MG)
     Route: 037
     Dates: start: 20190520
  3. METHOTREXATE [Suspect]
     Active Substance: METHOTREXATE
     Dosage: 20 MILLIGRAM/SQ. METER, QWK (TOTAL DOSE 47.5 MG)
     Route: 048
     Dates: start: 20190603
  4. PREDNISONE [Suspect]
     Active Substance: PREDNISONE
     Indication: B precursor type acute leukaemia
     Dosage: 60 MILLIGRAM/SQ. METER, DAY 1-5 Q3MONTHS (TOTAL DOSE: 550 MG)
     Route: 048
     Dates: start: 20190520
  5. VINCRISTINE SULFATE [Suspect]
     Active Substance: VINCRISTINE SULFATE
     Indication: B precursor type acute leukaemia
     Dosage: 1.4 MILLIGRAM/SQ. METER, Q3MO (TOTAL DOSE: 2 MG)
     Route: 042
     Dates: start: 20190520
  6. MERCAPTOPURINE [Suspect]
     Active Substance: MERCAPTOPURINE
     Indication: B precursor type acute leukaemia
     Dosage: 60 MG/M2 PO DAYS 1-14,29-42 (TOTAL DOSE: 7950 MG)
     Route: 048
     Dates: start: 20190520
  7. ACYCLOVIR [Concomitant]
     Active Substance: ACYCLOVIR
     Indication: Herpes zoster
     Dosage: UNK
  8. ACYCLOVIR [Concomitant]
     Active Substance: ACYCLOVIR
     Dosage: 800 MILLIGRAM, 5 TIMES A DAY

REACTIONS (2)
  - Syncope [Recovered/Resolved]
  - Herpes zoster [Recovered/Resolved]

NARRATIVE: CASE EVENT DATE: 20190609
